FAERS Safety Report 10879973 (Version 3)
Quarter: 2015Q2

REPORT INFORMATION
  Report Type: Report from Study
  Country: US (occurrence: US)
  Receive Date: 20150302
  Receipt Date: 20150619
  Transmission Date: 20150821
  Serious: Yes (Death, Other)
  Sender: FDA-Public Use
  Company Number: US-GILEAD-2015-0130316

PATIENT
  Age: 58 Year
  Sex: Female
  Weight: 117.1 kg

DRUGS (12)
  1. LEVOTHYROXINE [Concomitant]
     Active Substance: LEVOTHYROXINE
     Dosage: 25 ?G, QD
     Route: 048
  2. RIBAVIRIN. [Suspect]
     Active Substance: RIBAVIRIN
     Dosage: 400 MG, BID
     Route: 048
  3. LEVOFLOXACIN. [Concomitant]
     Active Substance: LEVOFLOXACIN
     Indication: UPPER RESPIRATORY TRACT INFECTION
     Dosage: 500 MG, BID
     Route: 048
  4. RIBAVIRIN. [Suspect]
     Active Substance: RIBAVIRIN
     Dosage: 600 MG, QD
     Route: 048
  5. TRAMADOL [Concomitant]
     Active Substance: TRAMADOL
     Indication: PAIN
     Dosage: 50 MG, PRN
     Route: 048
  6. RIBAVIRIN. [Suspect]
     Active Substance: RIBAVIRIN
     Dosage: 200 MG, BID
     Route: 048
     Dates: start: 20140708
  7. RIFAXIMIN [Concomitant]
     Active Substance: RIFAXIMIN
     Indication: ENCEPHALOPATHY
  8. SOFOSBUVIR [Suspect]
     Active Substance: SOFOSBUVIR
     Indication: CHRONIC HEPATITIS C
     Dosage: 400 MG, QD
     Route: 048
     Dates: start: 20140528, end: 20141112
  9. RIBAVIRIN. [Suspect]
     Active Substance: RIBAVIRIN
     Indication: CHRONIC HEPATITIS C
     Dosage: 1000 MG, QD
     Route: 048
     Dates: start: 20140528
  10. LASIX [Concomitant]
     Active Substance: FUROSEMIDE
     Indication: POLYURIA
  11. ALBUTEROL                          /00139501/ [Concomitant]
     Active Substance: ALBUTEROL
     Dosage: 2 DF, BID
     Route: 050
  12. POTASSIUM [Concomitant]
     Active Substance: POTASSIUM
     Indication: SUPPLEMENTATION THERAPY
     Dosage: UNK, PRN

REACTIONS (15)
  - Death [Fatal]
  - Hepatic encephalopathy [Unknown]
  - Chest pain [Unknown]
  - Vomiting [Unknown]
  - Muscle spasms [Unknown]
  - Fatigue [Unknown]
  - Lower limb fracture [Unknown]
  - Paraesthesia [Unknown]
  - Back pain [Unknown]
  - Ascites [Unknown]
  - Skin hyperpigmentation [Unknown]
  - Oedema peripheral [Unknown]
  - Upper respiratory tract infection [Unknown]
  - Asthenia [Unknown]
  - Drug ineffective [Unknown]

NARRATIVE: CASE EVENT DATE: 2011
